FAERS Safety Report 25228155 (Version 1)
Quarter: 2025Q2

REPORT INFORMATION
  Report Type: Spontaneous
  Country: RO (occurrence: RO)
  Receive Date: 20250423
  Receipt Date: 20250423
  Transmission Date: 20250717
  Serious: Yes (Other)
  Sender: ASTELLAS
  Company Number: RO-ASTELLAS-2025-AER-021634

PATIENT
  Age: 79 Year
  Sex: Male

DRUGS (3)
  1. ENZALUTAMIDE [Suspect]
     Active Substance: ENZALUTAMIDE
     Indication: Prostate cancer
     Dosage: 160 MG/DAY 4 TABLETS X 40MG
     Route: 048
     Dates: start: 202211, end: 202403
  2. ENZALUTAMIDE [Suspect]
     Active Substance: ENZALUTAMIDE
     Route: 048
     Dates: start: 202404
  3. ELIGARD [Concomitant]
     Active Substance: LEUPROLIDE ACETATE
     Indication: Prostate cancer
     Dosage: 45 MG/6 MONTHS, CONTINUED (ONGOING)
     Route: 065
     Dates: start: 202211

REACTIONS (5)
  - Urinary retention [Unknown]
  - Malignant neoplasm progression [Unknown]
  - Prostatic specific antigen increased [Recovering/Resolving]
  - Pleurisy [Unknown]
  - Renal mass [Unknown]

NARRATIVE: CASE EVENT DATE: 20221101
